FAERS Safety Report 5034586-3 (Version None)
Quarter: 2006Q2

REPORT INFORMATION
  Report Type: 
  Country: None (occurrence: None)
  Receive Date: 20060621
  Receipt Date: 20060531
  Transmission Date: 20061013
  Serious: Yes (Hospitalization)
  Sender: FDA-Public Use
  Company Number: 20063038

PATIENT
  Sex: Male

DRUGS (1)
  1. LIORESAL [Suspect]
     Indication: MUSCLE SPASTICITY
     Dosage: 280 MCG, DAILY, INTRATHECAL
     Route: 037

REACTIONS (2)
  - BLOOD UREA DECREASED [None]
  - GASTROENTERITIS [None]
